FAERS Safety Report 17572724 (Version 1)
Quarter: 2020Q1

REPORT INFORMATION
  Report Type: Spontaneous
  Country: US (occurrence: US)
  Receive Date: 20200323
  Receipt Date: 20200323
  Transmission Date: 20200409
  Serious: Yes (Hospitalization)
  Sender: FDA-Public Use
  Company Number: US-CURIUM-199800084

PATIENT
  Age: 64 Year
  Sex: Male

DRUGS (1)
  1. OCTREOSCAN [Suspect]
     Active Substance: INDIUM IN-111 CHLORIDE\INDIUM IN-111 PENTETREOTIDE
     Indication: CARCINOID TUMOUR
     Route: 042
     Dates: start: 19980225, end: 19980225

REACTIONS (5)
  - Product use issue [Recovered/Resolved]
  - Vomiting [Unknown]
  - Abdominal pain upper [Unknown]
  - Nausea [Unknown]
  - Intentional product use issue [Recovered/Resolved]
